FAERS Safety Report 25083530 (Version 1)
Quarter: 2025Q1

REPORT INFORMATION
  Report Type: Spontaneous
  Country: US (occurrence: None)
  Receive Date: 20250314
  Receipt Date: 20250314
  Transmission Date: 20250409
  Serious: Yes (Hospitalization)
  Sender: FDA-CTU
  Company Number: None

PATIENT
  Sex: Male

DRUGS (1)
  1. CUVITRU [Suspect]
     Active Substance: HUMAN IMMUNOGLOBULIN G
     Dosage: FREQUENCY : WEEKLY;?
     Route: 058
     Dates: start: 202202

REACTIONS (3)
  - Medical procedure [None]
  - Gastrointestinal disorder [None]
  - Haemarthrosis [None]
